FAERS Safety Report 4995032-9 (Version None)
Quarter: 2006Q2

REPORT INFORMATION
  Report Type: 
  Country: None (occurrence: None)
  Receive Date: 20060508
  Receipt Date: 20060425
  Transmission Date: 20061013
  Serious: Yes (Hospitalization)
  Sender: FDA-Public Use
  Company Number: GB-GLAXOSMITHKLINE-B0421250A

PATIENT
  Sex: Female

DRUGS (5)
  1. AMOXYCILLIN [Suspect]
     Indication: INFECTION
     Route: 048
     Dates: start: 20050919, end: 20050922
  2. TRIMETHOPRIM [Suspect]
     Indication: INFECTION
     Dosage: 200MG PER DAY
     Route: 048
     Dates: start: 20050920, end: 20050922
  3. DOSULEPIN [Concomitant]
     Indication: DEPRESSION
     Dosage: 50MG PER DAY
     Route: 048
  4. ENALAPRIL MALEATE [Concomitant]
     Dosage: 15MG PER DAY
     Route: 048
  5. ADCAL [Concomitant]
     Indication: PROPHYLAXIS
     Route: 048

REACTIONS (2)
  - HAEMATOMA [None]
  - INTERNATIONAL NORMALISED RATIO INCREASED [None]
